FAERS Safety Report 8811178 (Version 1)
Quarter: 2012Q4

REPORT INFORMATION
  Report Type: 
  Country: CA (occurrence: CA)
  Receive Date: 20120927
  Receipt Date: 20120927
  Transmission Date: 20130627
  Serious: Yes (Other)
  Sender: FDA-Public Use
  Company Number: PHHY2012CA083058

PATIENT
  Sex: Male

DRUGS (2)
  1. SANDOSTATIN LAR [Suspect]
     Indication: ACROMEGALY
     Dosage: 20 mg, once a month
     Route: 030
     Dates: start: 20120422
  2. SANDOSTATIN LAR [Suspect]
     Dosage: 20 mg, once a month
     Route: 030
     Dates: start: 201209

REACTIONS (1)
  - Deep vein thrombosis [Unknown]
